FAERS Safety Report 9323961 (Version 2)
Quarter: 2013Q2

REPORT INFORMATION
  Report Type: Spontaneous
  Country: IT (occurrence: IT)
  Receive Date: 20130603
  Receipt Date: 20130618
  Transmission Date: 20140414
  Serious: Yes (Hospitalization, Other)
  Sender: FDA-Public Use
  Company Number: IT-BRISTOL-MYERS SQUIBB COMPANY-18958322

PATIENT
  Age: 71 Year
  Sex: Male

DRUGS (6)
  1. COUMADIN [Suspect]
     Indication: ATRIAL FIBRILLATION
     Route: 048
  2. NEXAVAR [Interacting]
     Indication: HEPATOCELLULAR CARCINOMA
     Dosage: TABS
     Route: 048
     Dates: start: 20121012, end: 20130323
  3. ANTRA [Concomitant]
     Dosage: CAPS
     Route: 048
  4. DEURSIL [Concomitant]
     Dosage: CAPS
     Route: 048
  5. MICARDIS [Concomitant]
     Dosage: TABS
     Route: 048
  6. SEQUACOR [Concomitant]
     Route: 048

REACTIONS (4)
  - Rectal haemorrhage [Recovered/Resolved]
  - Haemorrhoids [Unknown]
  - Drug interaction [Unknown]
  - International normalised ratio increased [Unknown]
